FAERS Safety Report 11871384 (Version 1)
Quarter: 2015Q4

REPORT INFORMATION
  Report Type: Spontaneous
  Country: US (occurrence: US)
  Receive Date: 20151228
  Receipt Date: 20151228
  Transmission Date: 20160305
  Serious: Yes (Other)
  Sender: FDA-Public Use
  Company Number: US-WEST-WARD PHARMACEUTICALS CORP.-US-H14001-15-02194

PATIENT
  Age: 72 Year
  Sex: Female

DRUGS (1)
  1. INFUMORPH [Suspect]
     Active Substance: MORPHINE SULFATE
     Indication: PAIN
     Route: 037
     Dates: end: 201512

REACTIONS (3)
  - Pneumonia [Unknown]
  - Underdose [Unknown]
  - Pain [Unknown]

NARRATIVE: CASE EVENT DATE: 201512
